FAERS Safety Report 4349348-X (Version None)
Quarter: 2004Q2

REPORT INFORMATION
  Report Type: 
  Country: None (occurrence: None)
  Receive Date: 20040428
  Receipt Date: 20031112
  Transmission Date: 20050107
  Serious: Yes (Other)
  Sender: FDA-Public Use
  Company Number: PHBS2003CA12965

PATIENT
  Age: 56 Year
  Sex: Female

DRUGS (2)
  1. AREDIA [Suspect]
     Dosage: UNK, ONCE/SINGLE
     Dates: start: 20030701, end: 20030701
  2. AREDIA [Suspect]
     Dosage: UNK, ONCE/SINGLE
     Dates: start: 20030801, end: 20030801

REACTIONS (6)
  - BALANCE DISORDER [None]
  - DIZZINESS [None]
  - INNER EAR DISORDER [None]
  - NAUSEA [None]
  - TINNITUS [None]
  - VERTIGO [None]
